FAERS Safety Report 16214666 (Version 3)
Quarter: 2021Q2

REPORT INFORMATION
  Report Type: Spontaneous
  Country: US (occurrence: US)
  Receive Date: 20190418
  Receipt Date: 20210624
  Transmission Date: 20210716
  Serious: Yes (Other)
  Sender: FDA-Public Use
  Company Number: US-GILEAD-2019-0402840

PATIENT
  Age: 43 Year
  Sex: Male
  Weight: 131.07 kg

DRUGS (78)
  1. GENVOYA [Concomitant]
     Active Substance: COBICISTAT\ELVITEGRAVIR\EMTRICITABINE\TENOFOVIR ALAFENAMIDE FUMARATE
  2. PREVACID [Concomitant]
     Active Substance: LANSOPRAZOLE
  3. AMPHOJEL 65 [Concomitant]
  4. CYANOCOBALAMIN. [Concomitant]
     Active Substance: CYANOCOBALAMIN
  5. INTELENCE [Concomitant]
     Active Substance: ETRAVIRINE
  6. FLUTICASONE. [Concomitant]
     Active Substance: FLUTICASONE
  7. PREZCOBIX [Concomitant]
     Active Substance: COBICISTAT\DARUNAVIR ETHANOLATE
  8. AMOXI CLAV [Concomitant]
     Active Substance: AMOXICILLIN\CLAVULANATE POTASSIUM
  9. ALLOPURINOL. [Concomitant]
     Active Substance: ALLOPURINOL
  10. PREGABALIN. [Concomitant]
     Active Substance: PREGABALIN
  11. ENDOCET [Concomitant]
     Active Substance: ACETAMINOPHEN\OXYCODONE HYDROCHLORIDE
  12. VIREAD [Suspect]
     Active Substance: TENOFOVIR DISOPROXIL FUMARATE
     Dosage: 300 MG, QOD
     Route: 048
  13. DIDANOSINE. [Concomitant]
     Active Substance: DIDANOSINE
  14. NORVIR [Concomitant]
     Active Substance: RITONAVIR
  15. FERROUS SULFATE. [Concomitant]
     Active Substance: FERROUS SULFATE
  16. VITAPLEX MINERAL [Concomitant]
  17. OXYCONTIN [Concomitant]
     Active Substance: OXYCODONE HYDROCHLORIDE
  18. NASONEX [Concomitant]
     Active Substance: MOMETASONE FUROATE
  19. PRAVASTATIN. [Concomitant]
     Active Substance: PRAVASTATIN
  20. VIREAD [Suspect]
     Active Substance: TENOFOVIR DISOPROXIL FUMARATE
     Dosage: 300 MG, QD
     Route: 048
  21. VIREAD [Suspect]
     Active Substance: TENOFOVIR DISOPROXIL FUMARATE
     Dosage: UNK
     Route: 065
     Dates: start: 200305, end: 20160928
  22. SYMTUZA [Concomitant]
     Active Substance: COBICISTAT\DARUNAVIR\EMTRICITABINE\TENOFOVIR ALAFENAMIDE
  23. EPOGEN [Concomitant]
     Active Substance: ERYTHROPOIETIN
  24. GABAPENTIN. [Concomitant]
     Active Substance: GABAPENTIN
  25. ZITHROMAX [Concomitant]
     Active Substance: AZITHROMYCIN DIHYDRATE
  26. TOPROL XL [Concomitant]
     Active Substance: METOPROLOL SUCCINATE
  27. IBUPROFEN. [Concomitant]
     Active Substance: IBUPROFEN
  28. ZOLPIDEM TARTRATE. [Concomitant]
     Active Substance: ZOLPIDEM TARTRATE
  29. PREZISTA [Concomitant]
     Active Substance: DARUNAVIR ETHANOLATE
  30. FUROSEMIDE. [Concomitant]
     Active Substance: FUROSEMIDE
  31. SULFAMETHOXAZOLE AND TRIMETHOPRIM [Concomitant]
     Active Substance: SULFAMETHOXAZOLE\TRIMETHOPRIM
  32. REYATAZ [Concomitant]
     Active Substance: ATAZANAVIR SULFATE
  33. LORTAB [Concomitant]
     Active Substance: ACETAMINOPHEN\HYDROCODONE BITARTRATE
  34. ZYRTEC [Concomitant]
     Active Substance: CETIRIZINE HYDROCHLORIDE
  35. ARANESP [Concomitant]
     Active Substance: DARBEPOETIN ALFA
  36. RENAGEL [Concomitant]
     Active Substance: SEVELAMER HYDROCHLORIDE
  37. NEUPOGEN [Concomitant]
     Active Substance: FILGRASTIM
  38. AMOXICILLIN. [Concomitant]
     Active Substance: AMOXICILLIN
  39. SPORANOX [Concomitant]
     Active Substance: ITRACONAZOLE
  40. VIAGRA [Concomitant]
     Active Substance: SILDENAFIL CITRATE
  41. VIREAD [Suspect]
     Active Substance: TENOFOVIR DISOPROXIL FUMARATE
     Dosage: 300 MG, Q1WK
     Route: 048
     Dates: start: 200305, end: 201608
  42. ITRACONAZOLE. [Concomitant]
     Active Substance: ITRACONAZOLE
  43. AZITHROMYCIN ANHYDROUS. [Concomitant]
     Active Substance: AZITHROMYCIN ANHYDROUS
  44. PHENERGAN [Concomitant]
     Active Substance: PROMETHAZINE HYDROCHLORIDE
  45. TENOFOVIR [Concomitant]
     Active Substance: TENOFOVIR
  46. ZERIT [Concomitant]
     Active Substance: STAVUDINE
  47. MEGACE [Concomitant]
     Active Substance: MEGESTROL ACETATE
  48. BACTROBAN [Concomitant]
     Active Substance: MUPIROCIN\MUPIROCIN CALCIUM
  49. BIDEX DM [Concomitant]
  50. ISENTRESS [Concomitant]
     Active Substance: RALTEGRAVIR POTASSIUM
  51. CYCLOBENZAPRINE. [Concomitant]
     Active Substance: CYCLOBENZAPRINE
  52. LANSOPRAZOLE. [Concomitant]
     Active Substance: LANSOPRAZOLE
  53. TRIMETHOPRIM SULFA [Concomitant]
     Active Substance: TRIMETHOPRIM SULFATE
  54. AMBIEN [Concomitant]
     Active Substance: ZOLPIDEM TARTRATE
  55. PERCOCET [Concomitant]
     Active Substance: ACETAMINOPHEN\OXYCODONE HYDROCHLORIDE
  56. TRAZODONE [Concomitant]
     Active Substance: TRAZODONE HYDROCHLORIDE
  57. MEPRON [Concomitant]
     Active Substance: ATOVAQUONE
  58. VIRACEPT [Concomitant]
     Active Substance: NELFINAVIR MESYLATE
  59. FENTANYL. [Concomitant]
     Active Substance: FENTANYL
  60. VITAMIN D NOS [Concomitant]
     Active Substance: VITAMIN D NOS
  61. COLCRYS [Concomitant]
     Active Substance: COLCHICINE
  62. VIREAD [Suspect]
     Active Substance: TENOFOVIR DISOPROXIL FUMARATE
     Indication: HIV INFECTION
     Dosage: 300 MG, Q1WK
     Route: 048
     Dates: start: 200305, end: 200606
  63. VIREAD [Suspect]
     Active Substance: TENOFOVIR DISOPROXIL FUMARATE
     Dosage: 300 MG, Q3DAYS
     Route: 048
  64. VALTREX [Concomitant]
     Active Substance: VALACYCLOVIR HYDROCHLORIDE
  65. DIFLUCAN [Concomitant]
     Active Substance: FLUCONAZOLE
  66. VITAMIN B6 [Concomitant]
     Active Substance: PYRIDOXINE HYDROCHLORIDE
  67. FOSRENOL [Concomitant]
     Active Substance: LANTHANUM CARBONATE
  68. NEXIUM [Concomitant]
     Active Substance: ESOMEPRAZOLE MAGNESIUM
  69. ZIAGEN [Concomitant]
     Active Substance: ABACAVIR SULFATE
  70. VITAMIN D2 [Concomitant]
     Active Substance: ERGOCALCIFEROL
  71. ISENTRESS [Concomitant]
     Active Substance: RALTEGRAVIR POTASSIUM
  72. VIDEX [Concomitant]
     Active Substance: DIDANOSINE
  73. VALACYCLOVIR HCL [Concomitant]
     Active Substance: VALACYCLOVIR HYDROCHLORIDE
  74. BIKTARVY [Concomitant]
     Active Substance: BICTEGRAVIR SODIUM\EMTRICITABINE\TENOFOVIR ALAFENAMIDE FUMARATE
  75. BACTRIM DS [Concomitant]
     Active Substance: SULFAMETHOXAZOLE\TRIMETHOPRIM
  76. 3TC [Concomitant]
     Active Substance: LAMIVUDINE
  77. LISINOPRIL. [Concomitant]
     Active Substance: LISINOPRIL
  78. RENAGEL [SEVELAMER CARBONATE] [Concomitant]

REACTIONS (18)
  - Tooth loss [Not Recovered/Not Resolved]
  - Anxiety [Unknown]
  - Peripheral swelling [Unknown]
  - Anhedonia [Unknown]
  - Pain [Unknown]
  - Arthralgia [Unknown]
  - Chronic kidney disease [Unknown]
  - Economic problem [Unknown]
  - Malaise [Unknown]
  - Gait disturbance [Unknown]
  - Pain in extremity [Unknown]
  - Acute kidney injury [Unknown]
  - Bone density decreased [Not Recovered/Not Resolved]
  - Emotional distress [Unknown]
  - End stage renal disease [Not Recovered/Not Resolved]
  - Renal failure [Unknown]
  - Renal impairment [Unknown]
  - Mobility decreased [Unknown]

NARRATIVE: CASE EVENT DATE: 200610
